FAERS Safety Report 15302842 (Version 5)
Quarter: 2022Q1

REPORT INFORMATION
  Report Type: Report from Study
  Country: DE (occurrence: DE)
  Receive Date: 20180821
  Receipt Date: 20220220
  Transmission Date: 20220424
  Serious: Yes (Death, Life-Threatening, Hospitalization, Other)
  Sender: FDA-Public Use
  Company Number: PHHY2018DE075920

PATIENT
  Sex: Female
  Weight: 70 kg

DRUGS (6)
  1. GILENYA [Suspect]
     Active Substance: FINGOLIMOD HYDROCHLORIDE
     Indication: Multiple sclerosis
     Dosage: 0.5 MG, QD
     Route: 048
     Dates: start: 20151117
  2. NABIXIMOLS [Concomitant]
     Active Substance: NABIXIMOLS
     Indication: Muscle spasticity
     Dosage: 10 ML (810 MG), TID
     Route: 065
     Dates: start: 20150205
  3. TIZANIDINE [Concomitant]
     Active Substance: TIZANIDINE
     Indication: Muscle spasticity
     Dosage: 4 MG, UNK
     Route: 065
     Dates: start: 20150209
  4. SPASMEX [Concomitant]
     Indication: Bladder disorder
     Dosage: 30 MG, TID
     Route: 065
     Dates: start: 20111129
  5. METHYLPREDNISOLONE [Concomitant]
     Active Substance: METHYLPREDNISOLONE
     Indication: Multiple sclerosis relapse
     Dosage: 1000 MG, UNK
     Route: 065
     Dates: start: 20180329, end: 20180331
  6. DALFAMPRIDINE [Concomitant]
     Active Substance: DALFAMPRIDINE
     Indication: Gait disturbance
     Dosage: 20 MG, UNK
     Route: 065
     Dates: start: 20180404

REACTIONS (5)
  - Nervous system disorder [Fatal]
  - Infection [Fatal]
  - Pyelonephritis [Unknown]
  - Gait inability [Unknown]
  - Urinary tract infection [Unknown]

NARRATIVE: CASE EVENT DATE: 20180203
